FAERS Safety Report 5390825-0 (Version None)
Quarter: 2007Q3

REPORT INFORMATION
  Report Type: 
  Country: None (occurrence: None)
  Receive Date: 20070706
  Receipt Date: 20070628
  Transmission Date: 20080115
  Serious: Yes (Hospitalization)
  Sender: FDA-Public Use
  Company Number: GAM-051-07-DE

PATIENT
  Age: 54 Year
  Sex: Female

DRUGS (2)
  1. OCTAGAM [Suspect]
     Indication: MYASTHENIA GRAVIS
     Dosage: 10 G I.V.
     Route: 042
     Dates: start: 20070627, end: 20070627
  2. AZATHIOPRIN (AZATHIOPRIN) [Concomitant]

REACTIONS (1)
  - MYASTHENIA GRAVIS CRISIS [None]
